FAERS Safety Report 8600431-X (Version None)
Quarter: 2012Q3

REPORT INFORMATION
  Report Type: 
  Country: None (occurrence: None)
  Receive Date: 20120817
  Receipt Date: 20120804
  Transmission Date: 20120928
  Serious: Yes (Hospitalization, Other)
  Sender: FDA-Public Use
  Company Number: ES-PAR PHARMACEUTICAL, INC-2012SCPR004557

PATIENT

DRUGS (4)
  1. ADRENALIN IN OIL INJ [Suspect]
     Dosage: 0.3 MG, UNKNOWN
     Route: 030
  2. ADRENALIN IN OIL INJ [Suspect]
     Indication: ANAPHYLACTIC REACTION
     Dosage: 0.5 MG, SINGLE
     Route: 030
  3. SIMVASTATIN [Concomitant]
     Indication: PRODUCT USED FOR UNKNOWN INDICATION
     Dosage: 10 MG, / DAY
     Route: 065
  4. METRONIDAZOLE [Suspect]
     Indication: DIAGNOSTIC PROCEDURE
     Dosage: 125 MG, SINGLE
     Route: 048

REACTIONS (3)
  - CEREBROVASCULAR SPASM [None]
  - ANAPHYLACTIC REACTION [None]
  - ISCHAEMIC STROKE [None]
